FAERS Safety Report 7288404-3 (Version None)
Quarter: 2011Q1

REPORT INFORMATION
  Report Type: 
  Country: None (occurrence: None)
  Receive Date: 20110207
  Receipt Date: 20110207
  Transmission Date: 20110831
  Serious: Yes (Other)
  Sender: FDA-Public Use
  Company Number: None

PATIENT
  Age: 62 Year
  Sex: Female
  Weight: 72.5755 kg

DRUGS (1)
  1. ACTOS [Suspect]
     Dosage: 1 TABLET BY MOUTH TWICE DAILY
     Route: 048
     Dates: start: 20110101, end: 20110201

REACTIONS (3)
  - HYPOAESTHESIA [None]
  - OEDEMA PERIPHERAL [None]
  - MASS [None]
